FAERS Safety Report 14153076 (Version 1)
Quarter: 2017Q4

REPORT INFORMATION
  Report Type: Spontaneous
  Country: US (occurrence: US)
  Receive Date: 20171102
  Receipt Date: 20171102
  Transmission Date: 20180321
  Serious: No
  Sender: FDA-Public Use
  Company Number: US-UPSHER-SMITH LABORATORIES, INC.-16002399

PATIENT
  Age: 76 Year
  Sex: Male

DRUGS (1)
  1. JANTOVEN [Suspect]
     Active Substance: WARFARIN SODIUM
     Indication: DEEP VEIN THROMBOSIS
     Dosage: 2.5 MG ON MON AND 5 MG QD TUE - SUN
     Route: 048
     Dates: start: 201610

REACTIONS (2)
  - Hypoaesthesia [None]
  - Monoplegia [None]

NARRATIVE: CASE EVENT DATE: 20161127
